FAERS Safety Report 5716559-8 (Version None)
Quarter: 2008Q2

REPORT INFORMATION
  Report Type: 
  Country: None (occurrence: None)
  Receive Date: 20080424
  Receipt Date: 20080409
  Transmission Date: 20081010
  Serious: Yes (Other)
  Sender: FDA-Public Use
  Company Number: US-AMGEN-US273755

PATIENT
  Sex: Male

DRUGS (5)
  1. NEULASTA [Suspect]
     Indication: CHEMOTHERAPY
  2. DEXAMETHASONE TAB [Concomitant]
  3. DACARBAZINE [Concomitant]
  4. DOXORUBICIN HYDROCHLORIDE [Concomitant]
  5. VINBLASTINE SULFATE [Concomitant]

REACTIONS (4)
  - GLOMERULONEPHRITIS RAPIDLY PROGRESSIVE [None]
  - LEUKOCYTOSIS [None]
  - PYREXIA [None]
  - RENAL FAILURE ACUTE [None]
